FAERS Safety Report 14242734 (Version 1)
Quarter: 2017Q4

REPORT INFORMATION
  Report Type: Not Available
  Country: FR (occurrence: FR)
  Receive Date: 20171201
  Receipt Date: 20171201
  Transmission Date: 20180321
  Serious: Yes (Hospitalization)
  Sender: FDA-Public Use
  Company Number: FR-SYNTHON BV-NL01PV17_45225

PATIENT
  Age: 71 Year
  Sex: Male

DRUGS (10)
  1. TAMSULOSIN [Suspect]
     Active Substance: TAMSULOSIN
     Dosage: UNK
     Route: 048
  2. DOLIPRANE [Suspect]
     Active Substance: ACETAMINOPHEN
     Dosage: UNK
     Route: 048
  3. ACTISKENAN [Suspect]
     Active Substance: MORPHINE SULFATE
     Dosage: UNK
     Route: 048
  4. DUROGESIC [Suspect]
     Active Substance: FENTANYL
     Dosage: UNK
     Route: 062
  5. BISOPROLOL FUMARATE. [Suspect]
     Active Substance: BISOPROLOL FUMARATE
     Indication: HYPERTENSION
     Dosage: UNK
  6. CALCIPARINE [Suspect]
     Active Substance: HEPARIN CALCIUM
     Indication: DEEP VEIN THROMBOSIS
     Dosage: UNK
     Route: 058
  7. DOCETAXEL. [Suspect]
     Active Substance: DOCETAXEL
     Dosage: 150 MG, EVERY CYCLE
     Route: 042
     Dates: start: 20170928, end: 20170928
  8. EUPANTOL [Suspect]
     Active Substance: PANTOPRAZOLE SODIUM
     Dosage: UNK
     Route: 048
  9. FORLAX [Suspect]
     Active Substance: POLYETHYLENE GLYCOL 4000
     Dosage: UNK
     Route: 048
  10. PERINDOPRIL [Concomitant]
     Active Substance: PERINDOPRIL
     Dosage: UNK

REACTIONS (1)
  - Eczema [Not Recovered/Not Resolved]

NARRATIVE: CASE EVENT DATE: 20171002
